FAERS Safety Report 23794783 (Version 3)
Quarter: 2024Q2

REPORT INFORMATION
  Report Type: Spontaneous
  Country: IN (occurrence: IN)
  Receive Date: 20240429
  Receipt Date: 20240520
  Transmission Date: 20240716
  Serious: Yes (Other)
  Sender: FDA-Public Use
  Company Number: None

PATIENT
  Age: 72 Year
  Sex: Male

DRUGS (4)
  1. OXALIPLATIN [Suspect]
     Active Substance: OXALIPLATIN
     Indication: Rectal cancer stage III
     Dosage: 85 MG/M2, EACH CYCLE REPEATED AFTER 2 WEEKS
     Route: 042
  2. LEUCOVORIN [Concomitant]
     Active Substance: LEUCOVORIN\LEUCOVORIN CALCIUM
     Indication: Rectal cancer stage III
     Dosage: OVER 2 H EACH CYCLE REPEATED AFTER 2 WEEKS
     Route: 042
  3. DEXTROSE [Concomitant]
     Active Substance: DEXTROSE\DEXTROSE MONOHYDRATE
     Indication: Rectal cancer stage III
     Dosage: SLOW INFUSION EACH CYCLE REPEATED AFTER 2 WEEKS
     Route: 041
  4. FLUOROURACIL [Concomitant]
     Active Substance: FLUOROURACIL
     Indication: Rectal cancer stage III
     Dosage: SLOW INFUSION, EACH CYCLE REPEATED AFTER 2 WEEKS
     Route: 041

REACTIONS (6)
  - Papilloedema [Recovering/Resolving]
  - Visual acuity reduced [Recovering/Resolving]
  - Dizziness [Recovering/Resolving]
  - Optic disc haemorrhage [Recovering/Resolving]
  - Visual field defect [Recovering/Resolving]
  - Visual impairment [Recovering/Resolving]
